FAERS Safety Report 7341802-1 (Version None)
Quarter: 2011Q1

REPORT INFORMATION
  Report Type: 
  Country: None (occurrence: None)
  Receive Date: 20110309
  Receipt Date: 20110301
  Transmission Date: 20110831
  Serious: Yes (Other)
  Sender: FDA-Public Use
  Company Number: NL-PFIZER INC-2011018484

PATIENT
  Age: 41 Year
  Sex: Male

DRUGS (4)
  1. RAPAMUNE [Suspect]
     Indication: RENAL TRANSPLANT
     Dosage: 2 MG, UNK
     Dates: start: 20070101
  2. RAPAMUNE [Suspect]
     Dosage: 1 MG, 1X/DAY
  3. PHENOBARBITAL [Concomitant]
     Dosage: 5 MG, 2X/DAY
  4. ENALAPRILAT [Concomitant]
     Indication: HYPERTENSION
     Dosage: 10 MG, 1X/DAY

REACTIONS (2)
  - BLOOD DISORDER [None]
  - TREMOR [None]
